FAERS Safety Report 17266426 (Version 1)
Quarter: 2020Q1

REPORT INFORMATION
  Report Type: Report from Study
  Country: PK (occurrence: PK)
  Receive Date: 20200114
  Receipt Date: 20200114
  Transmission Date: 20200409
  Serious: Yes (Death)
  Sender: FDA-Public Use
  Company Number: NVSC2020PK006475

PATIENT
  Age: 43 Year
  Sex: Male
  Weight: 38 kg

DRUGS (1)
  1. TASIGNA [Suspect]
     Active Substance: NILOTINIB
     Indication: CHRONIC MYELOID LEUKAEMIA
     Dosage: 600 MG, (2-0-1)
     Route: 048
     Dates: start: 20190423

REACTIONS (1)
  - Death [Fatal]

NARRATIVE: CASE EVENT DATE: 20190816
